FAERS Safety Report 4756231-4 (Version None)
Quarter: 2005Q3

REPORT INFORMATION
  Report Type: 
  Country: None (occurrence: None)
  Receive Date: 20050830
  Receipt Date: 20050510
  Transmission Date: 20060218
  Serious: No
  Sender: FDA-Public Use
  Company Number: US-GLAXOSMITHKLINE-A0557992A

PATIENT
  Age: 26 Year
  Sex: Female
  Weight: 57.7 kg

DRUGS (6)
  1. WELLBUTRIN XL [Suspect]
     Indication: DEPRESSION
     Dosage: 300MG SEE DOSAGE TEXT
     Route: 048
  2. AMARYL [Concomitant]
     Dosage: 2MG UNKNOWN
     Route: 048
  3. AVANDIA [Concomitant]
     Indication: DIABETES MELLITUS
     Dosage: 2MG UNKNOWN
     Route: 048
  4. FORTAMET [Concomitant]
     Route: 048
  5. LANTUS [Concomitant]
     Route: 048
  6. EFFEXOR XR [Concomitant]
     Route: 048

REACTIONS (3)
  - HYPERSENSITIVITY [None]
  - OVERDOSE [None]
  - URTICARIA [None]
